FAERS Safety Report 10759564 (Version 2)
Quarter: 2015Q1

REPORT INFORMATION
  Report Type: Report from Study
  Country: US (occurrence: US)
  Receive Date: 20150203
  Receipt Date: 20150203
  Transmission Date: 20150721
  Serious: Yes (Other)
  Sender: FDA-Public Use
  Company Number: US-GLAXOSMITHKLINE-US2015GSK013102

PATIENT
  Age: 45 Year
  Sex: Male
  Weight: 116 kg

DRUGS (10)
  1. DABRAFENIB [Suspect]
     Active Substance: DABRAFENIB
     Indication: METASTATIC MALIGNANT MELANOMA
     Dosage: 75 MG, BID
     Route: 048
     Dates: start: 20140411
  2. COMPAZINE [Concomitant]
     Active Substance: PROCHLORPERAZINE MALEATE
  3. ACETAMINOPHEN. [Concomitant]
     Active Substance: ACETAMINOPHEN
  4. TRAMETINIB [Suspect]
     Active Substance: TRAMETINIB
     Indication: METASTATIC MALIGNANT MELANOMA
     Dosage: 1.0 MG, QD
     Route: 048
     Dates: start: 20140411
  5. VITAMIN D3 [Concomitant]
     Active Substance: CHOLECALCIFEROL
  6. ICY HOT [Concomitant]
     Active Substance: MENTHOL\METHYL SALICYLATE
  7. METFORMIN [Concomitant]
     Active Substance: METFORMIN HYDROCHLORIDE
  8. LOSARTAN [Concomitant]
     Active Substance: LOSARTAN
  9. HYDROCHLOROTHIAZIDE. [Concomitant]
     Active Substance: HYDROCHLOROTHIAZIDE
  10. PREDNISONE. [Concomitant]
     Active Substance: PREDNISONE

REACTIONS (1)
  - Squamous cell carcinoma [Unknown]

NARRATIVE: CASE EVENT DATE: 20141230
